FAERS Safety Report 8377791-0 (Version None)
Quarter: 2012Q2

REPORT INFORMATION
  Report Type: 
  Country: None (occurrence: None)
  Receive Date: 20120522
  Receipt Date: 20120517
  Transmission Date: 20120825
  Serious: No
  Sender: FDA-Public Use
  Company Number: US-BAYER-2012-049589

PATIENT
  Sex: Female

DRUGS (2)
  1. LEVAQUIN [Concomitant]
     Indication: URINARY TRACT INFECTION
  2. CIPROFLOXACIN HCL [Suspect]
     Dosage: (2, 500MG TABLETS
     Route: 048

REACTIONS (3)
  - ABDOMINAL PAIN LOWER [None]
  - SOMNOLENCE [None]
  - NAUSEA [None]
